FAERS Safety Report 4326237-8 (Version None)
Quarter: 2004Q1

REPORT INFORMATION
  Report Type: 
  Country: None (occurrence: None)
  Receive Date: 20040323
  Receipt Date: 20040123
  Transmission Date: 20041129
  Serious: No
  Sender: FDA-Public Use
  Company Number: USA040156697

PATIENT
  Age: 44 Year
  Sex: Male

DRUGS (2)
  1. TADALAFIL [Suspect]
     Dosage: 20 MG/1 DAY
     Dates: start: 20031201
  2. FLOMAX MR (TAMSULOSIN HYDROCHLORIDE) [Concomitant]

REACTIONS (3)
  - DRUG EFFECT PROLONGED [None]
  - ERECTION INCREASED [None]
  - SPONTANEOUS PENILE ERECTION [None]
